FAERS Safety Report 6570410-5 (Version None)
Quarter: 2010Q1

REPORT INFORMATION
  Report Type: 
  Country: None (occurrence: None)
  Receive Date: 20100204
  Receipt Date: 20090306
  Transmission Date: 20100710
  Serious: No
  Sender: FDA-Public Use
  Company Number: A0772084A

PATIENT
  Age: 70 Year
  Sex: Male

DRUGS (6)
  1. ARIXTRA [Suspect]
     Indication: DEEP VEIN THROMBOSIS
     Dosage: 2.5MG PER DAY
     Route: 058
     Dates: start: 20090301
  2. ATENOLOL [Concomitant]
  3. NEXIUM [Concomitant]
  4. SIMVASTATIN [Concomitant]
  5. FLOMAX [Concomitant]
  6. LORTAB [Concomitant]

REACTIONS (2)
  - CHILLS [None]
  - HYPERHIDROSIS [None]
